FAERS Safety Report 7501814-1 (Version None)
Quarter: 2011Q2

REPORT INFORMATION
  Report Type: 
  Country: None (occurrence: None)
  Receive Date: 20110525
  Receipt Date: 20110502
  Transmission Date: 20111010
  Serious: Yes (Hospitalization, Other)
  Sender: FDA-Public Use
  Company Number: US-BAYER-201031249NA

PATIENT
  Age: 35 Year
  Sex: Female
  Weight: 82 kg

DRUGS (5)
  1. YASMIN [Suspect]
     Indication: CONTRACEPTION
     Route: 048
     Dates: start: 20061201, end: 20080301
  2. CYMBALTA [Concomitant]
     Indication: DEPRESSION
  3. YASMIN [Suspect]
     Dosage: UNK
     Dates: start: 20090301
  4. YAZ [Suspect]
     Indication: CONTRACEPTION
     Route: 048
     Dates: start: 20080301, end: 20090401
  5. ALI-FLEX [Concomitant]
     Dosage: UNK
     Dates: start: 20090317

REACTIONS (3)
  - PANCREATITIS RELAPSING [None]
  - CHOLECYSTITIS CHRONIC [None]
  - GALLBLADDER DISORDER [None]
